FAERS Safety Report 6261420-6 (Version None)
Quarter: 2009Q3

REPORT INFORMATION
  Report Type: 
  Country: None (occurrence: None)
  Receive Date: 20090709
  Receipt Date: 20090702
  Transmission Date: 20100115
  Serious: Yes (Death)
  Sender: FDA-Public Use
  Company Number: JP-ASTRAZENECA-2009AP01096

PATIENT
  Age: 61 Year
  Sex: Male
  Weight: 50 kg

DRUGS (11)
  1. IRESSA [Suspect]
     Indication: LUNG ADENOCARCINOMA
     Route: 048
     Dates: start: 20081222, end: 20090109
  2. MUCOSTA [Concomitant]
     Route: 048
  3. MEVALOTIN [Concomitant]
     Route: 048
  4. AMLODIPINE [Concomitant]
     Route: 048
  5. BUFFERIN [Concomitant]
     Route: 048
  6. NAPROXEN [Concomitant]
     Route: 048
  7. MYSLEE [Concomitant]
     Route: 048
  8. LASIX [Concomitant]
     Route: 048
  9. TAKEPRON [Concomitant]
     Route: 048
  10. KAYEXALATE [Concomitant]
     Route: 048
  11. ADONA [Concomitant]
     Route: 048

REACTIONS (1)
  - LUNG DISORDER [None]
